FAERS Safety Report 8117895-0 (Version None)
Quarter: 2012Q1

REPORT INFORMATION
  Report Type: 
  Country: None (occurrence: None)
  Receive Date: 20120207
  Receipt Date: 20120130
  Transmission Date: 20120608
  Serious: Yes (Hospitalization, Other)
  Sender: FDA-Public Use
  Company Number: US-US-EMD SERONO, INC.-7099380

PATIENT
  Sex: Female

DRUGS (3)
  1. NAPROXEN (ALEVE) [Concomitant]
     Indication: PREMEDICATION
  2. REBIF [Suspect]
     Route: 058
  3. REBIF [Suspect]
     Indication: MULTIPLE SCLEROSIS
     Route: 058
     Dates: start: 20110725

REACTIONS (5)
  - EMOTIONAL DISTRESS [None]
  - BLINDNESS TRANSIENT [None]
  - DIZZINESS [None]
  - AORTIC ANEURYSM [None]
  - PNEUMONIA [None]
